FAERS Safety Report 15688869 (Version 1)
Quarter: 2018Q4

REPORT INFORMATION
  Report Type: Report from Study
  Country: CH (occurrence: CH)
  Receive Date: 20181205
  Receipt Date: 20181205
  Transmission Date: 20190205
  Serious: Yes (Hospitalization, Other)
  Sender: FDA-Public Use
  Company Number: CH-ACCORD-094553

PATIENT
  Age: 22 Year
  Sex: Male

DRUGS (3)
  1. AMPHOTERICIN B/AMPHOTERICIN B/LIPOSOME [Concomitant]
     Indication: ANTIFUNGAL PROPHYLAXIS
  2. ITRACONAZOLE. [Concomitant]
     Active Substance: ITRACONAZOLE
     Indication: ANTIFUNGAL PROPHYLAXIS
  3. TACROLIMUS. [Suspect]
     Active Substance: TACROLIMUS
     Indication: IMMUNOSUPPRESSION

REACTIONS (1)
  - Scedosporium infection [Recovering/Resolving]
